FAERS Safety Report 7351237-3 (Version None)
Quarter: 2011Q1

REPORT INFORMATION
  Report Type: 
  Country: None (occurrence: None)
  Receive Date: 20110314
  Receipt Date: 20110307
  Transmission Date: 20110831
  Serious: Yes (Other)
  Sender: FDA-Public Use
  Company Number: US-US-EMD SERONO, INC.-7044305

PATIENT
  Sex: Male

DRUGS (1)
  1. REBIF [Suspect]
     Indication: MULTIPLE SCLEROSIS
     Route: 058
     Dates: start: 20110222, end: 20110222

REACTIONS (4)
  - SUICIDAL IDEATION [None]
  - LIMB DISCOMFORT [None]
  - PAIN [None]
  - DEPRESSED MOOD [None]
